FAERS Safety Report 9717885 (Version 1)
Quarter: 2013Q4

REPORT INFORMATION
  Report Type: Spontaneous
  Country: US (occurrence: US)
  Receive Date: 20131125
  Receipt Date: 20131125
  Transmission Date: 20140711
  Serious: No
  Sender: FDA-Public Use
  Company Number: US-VIVUS-2013V1000327

PATIENT
  Sex: Male

DRUGS (1)
  1. QSYMIA [Suspect]
     Indication: WEIGHT DECREASED
     Route: 048

REACTIONS (4)
  - Blood glucose increased [Unknown]
  - Thyroid function test abnormal [Unknown]
  - Blood cholesterol decreased [Unknown]
  - Blood pressure decreased [Unknown]
